FAERS Safety Report 15863355 (Version 3)
Quarter: 2019Q1

REPORT INFORMATION
  Report Type: Spontaneous
  Country: RO (occurrence: RO)
  Receive Date: 20190124
  Receipt Date: 20190218
  Transmission Date: 20190417
  Serious: Yes (Other)
  Sender: FDA-Public Use
  Company Number: PHHY2019RO010675

PATIENT
  Age: 44 Year
  Sex: Male
  Weight: 53 kg

DRUGS (3)
  1. DICLOFENAC [Concomitant]
     Active Substance: DICLOFENAC
     Indication: PSORIATIC ARTHROPATHY
     Dosage: 100 MG, PRN
     Route: 048
     Dates: start: 20180611, end: 20181112
  2. ETORICOXIB. [Concomitant]
     Active Substance: ETORICOXIB
     Indication: PSORIATIC ARTHROPATHY
     Dosage: 90 MG, PRN
     Route: 048
     Dates: start: 20180611, end: 20181112
  3. COSENTYX [Suspect]
     Active Substance: SECUKINUMAB
     Indication: PSORIATIC ARTHROPATHY
     Dosage: 150 MG, QMO
     Route: 058
     Dates: start: 20180611, end: 20181108

REACTIONS (9)
  - Mucosal inflammation [Unknown]
  - Haematochezia [Unknown]
  - Weight decreased [Unknown]
  - Oedema mucosal [Unknown]
  - Gastrointestinal mucosa hyperaemia [Unknown]
  - Diarrhoea [Unknown]
  - Lower gastrointestinal haemorrhage [Unknown]
  - Acute haemorrhagic ulcerative colitis [Recovering/Resolving]
  - Abdominal pain [Unknown]

NARRATIVE: CASE EVENT DATE: 201810
